FAERS Safety Report 23651240 (Version 1)
Quarter: 2024Q1

REPORT INFORMATION
  Report Type: Spontaneous
  Country: HU (occurrence: HU)
  Receive Date: 20240320
  Receipt Date: 20240320
  Transmission Date: 20240410
  Serious: Yes (Hospitalization, Other)
  Sender: FDA-Public Use
  Company Number: None

PATIENT
  Age: 48 Year
  Sex: Female
  Weight: 64 kg

DRUGS (4)
  1. AZITHROMYCIN [Suspect]
     Active Substance: AZITHROMYCIN
     Indication: Respiratory tract infection
     Route: 048
     Dates: start: 202312, end: 202312
  2. CHLOROPYRAMINE HYDROCHLORIDE [Concomitant]
     Active Substance: CHLOROPYRAMINE HYDROCHLORIDE
     Indication: Product used for unknown indication
     Route: 065
  3. SYNTROXINE [Concomitant]
     Indication: Hypothyroidism
     Route: 048
     Dates: start: 20231229
  4. AUGMENTIN [Suspect]
     Active Substance: AMOXICILLIN\CLAVULANATE POTASSIUM
     Indication: Respiratory tract infection
     Route: 048
     Dates: start: 20231206, end: 20231220

REACTIONS (1)
  - Toxic skin eruption [Recovered/Resolved]

NARRATIVE: CASE EVENT DATE: 20231206
